FAERS Safety Report 5174299-0 (Version None)
Quarter: 2006Q4

REPORT INFORMATION
  Report Type: 
  Country: None (occurrence: None)
  Receive Date: 20061214
  Receipt Date: 20060509
  Transmission Date: 20070319
  Serious: Yes (Hospitalization, Other)
  Sender: FDA-Public Use
  Company Number: US-ELI_LILLY_AND_COMPANY-US200608005777

PATIENT
  Age: 37 Year
  Sex: Female
  Weight: 74.376 kg

DRUGS (4)
  1. QUETIAPINE FUMARATE [Concomitant]
     Dates: start: 19990101
  2. BUPROPION HCL [Concomitant]
     Dates: start: 20060101
  3. VENLAFAXINE HCL [Concomitant]
     Dates: start: 20060101
  4. ZYPREXA [Suspect]
     Indication: BIPOLAR DISORDER
     Dosage: UNK, UNK
     Route: 065
     Dates: start: 19900101

REACTIONS (6)
  - ACETONAEMIA [None]
  - CHEST PAIN [None]
  - HYPERGLYCAEMIA [None]
  - KETONURIA [None]
  - LACTIC ACIDOSIS [None]
  - METABOLIC DISORDER [None]
